FAERS Safety Report 11783890 (Version 4)
Quarter: 2016Q2

REPORT INFORMATION
  Report Type: Report from Study
  Country: DE (occurrence: DE)
  Receive Date: 20151127
  Receipt Date: 20160620
  Transmission Date: 20160815
  Serious: Yes (Death, Hospitalization)
  Sender: FDA-Public Use
  Company Number: DE-AMGEN-DEUCT2015126088

PATIENT
  Age: 70 Year
  Sex: Male

DRUGS (1)
  1. CARFILZOMIB [Suspect]
     Active Substance: CARFILZOMIB
     Indication: PLASMA CELL MYELOMA
     Dosage: 40 MG, UNK
     Route: 042
     Dates: start: 20151109, end: 20151110

REACTIONS (3)
  - Plasma cell myeloma [Unknown]
  - Hypocalcaemia [Unknown]
  - Death [Fatal]

NARRATIVE: CASE EVENT DATE: 201511
